FAERS Safety Report 6258664-6 (Version None)
Quarter: 2009Q3

REPORT INFORMATION
  Report Type: 
  Country: None (occurrence: None)
  Receive Date: 20090707
  Receipt Date: 20090703
  Transmission Date: 20100115
  Serious: Yes (Life-Threatening)
  Sender: FDA-Public Use
  Company Number: DE-WYE-H10014609

PATIENT
  Sex: Male
  Weight: 75 kg

DRUGS (4)
  1. GEMTUZUMAB OZOGAMICIN [Suspect]
     Indication: ACUTE MYELOID LEUKAEMIA
     Dosage: 11 MG ACTUAL DOSE - FREQUENCY NOT PROVIDED (11 MG CUMULATIVE DOSE)
     Route: 065
     Dates: start: 20040130, end: 20040130
  2. ETOPOSIDE [Suspect]
     Indication: ACUTE MYELOID LEUKAEMIA
     Dosage: 190 MG ACTUAL DOSE GIVEN - FREQUENCY NOT PROVIDED (570 MG CUMULATIVE DOSE GIVEN)
     Route: 065
     Dates: start: 20040209, end: 20040211
  3. ARA-C [Suspect]
     Indication: ACUTE MYELOID LEUKAEMIA
     Dosage: 190 MG ACTUAL DOSE GIVEN - FREQUENCY NOT PROVIDED (CUMULATIVE DOSE GIVEN 1330 MG)
     Route: 065
     Dates: start: 20040209, end: 20040215
  4. MITOXANTRONE [Suspect]
     Indication: ACUTE MYELOID LEUKAEMIA
     Dosage: 13.3 MG ACTUAL DOSE GIVEN - FREQUENCY NOT PROVIDED (CUMULATIVE DOSE GIVEN 39.9 MG)
     Route: 065
     Dates: start: 20040209, end: 20040213

REACTIONS (2)
  - FUNGAL INFECTION [None]
  - LUNG INFILTRATION [None]
